FAERS Safety Report 8450780-3 (Version None)
Quarter: 2012Q2

REPORT INFORMATION
  Report Type: 
  Country: None (occurrence: None)
  Receive Date: 20120613
  Receipt Date: 20120606
  Transmission Date: 20120825
  Serious: Yes (Hospitalization, Other)
  Sender: FDA-Public Use
  Company Number: AUR-APL-2012-02576

PATIENT
  Age: 77 Year
  Sex: Male

DRUGS (7)
  1. OLMESARTAN MEDOXOMIL [Concomitant]
  2. CORLENTOR (IVABRADINE) [Concomitant]
  3. NORVASC [Concomitant]
  4. ASPIRIN [Concomitant]
  5. REPAGLINIDE [Suspect]
     Indication: DIABETES MELLITUS
     Dosage: (6 MG, 1 D), ORAL
     Route: 048
     Dates: start: 20120320, end: 20120501
  6. METFFORMIN HYDROCHLORIDE [Suspect]
     Indication: DIABETES MELLITUS
     Dosage: (1000 MG), ORAL
     Route: 048
     Dates: start: 20120401, end: 20120501
  7. NITROGLICERINA(GLYCERYL TRINITRATE) [Concomitant]

REACTIONS (3)
  - ASTHENIA [None]
  - HYPERHIDROSIS [None]
  - HYPOGLYCAEMIA [None]
